FAERS Safety Report 10358131 (Version 2)
Quarter: 2014Q3

REPORT INFORMATION
  Report Type: Spontaneous
  Country: US (occurrence: None)
  Receive Date: 20140730
  Receipt Date: 20140811
  Transmission Date: 20150326
  Serious: Yes (Other)
  Sender: FDA-Public Use
  Company Number: UNT-2014-002784

PATIENT
  Age: 76 Year
  Sex: Female

DRUGS (4)
  1. ADCIRCA [Concomitant]
     Active Substance: TADALAFIL
  2. TYVASO [Suspect]
     Active Substance: TREPROSTINIL
     Indication: COR PULMONALE CHRONIC
     Route: 055
     Dates: start: 20130316, end: 201407
  3. COUMADIN [Concomitant]
     Active Substance: WARFARIN SODIUM
  4. LETAIRIS [Concomitant]
     Active Substance: AMBRISENTAN

REACTIONS (14)
  - Dizziness [None]
  - Headache [None]
  - Contusion [None]
  - Face injury [None]
  - Accidental overdose [None]
  - Chest pain [None]
  - Condition aggravated [None]
  - Dysgeusia [None]
  - Fall [None]
  - Pain [None]
  - Dyspnoea [None]
  - Treatment noncompliance [None]
  - Therapy cessation [None]
  - Feeling abnormal [None]

NARRATIVE: CASE EVENT DATE: 201405
